FAERS Safety Report 25366183 (Version 3)
Quarter: 2025Q4

REPORT INFORMATION
  Report Type: Spontaneous
  Country: US (occurrence: US)
  Receive Date: 20250528
  Receipt Date: 20251107
  Transmission Date: 20260117
  Serious: Yes (Other)
  Sender: ROCHE
  Company Number: US-ROCHE-10000288190

PATIENT
  Sex: Female
  Weight: 74.84 kg

DRUGS (2)
  1. XOLAIR [Suspect]
     Active Substance: OMALIZUMAB
     Indication: Urticaria
     Dosage: STRENGTH: 300 MG/2ML
     Route: 058
     Dates: start: 202503
  2. XOLAIR [Suspect]
     Active Substance: OMALIZUMAB
     Route: 058
     Dates: start: 202502

REACTIONS (3)
  - Drug ineffective [Unknown]
  - Anaphylactic reaction [Unknown]
  - Urticaria [Unknown]

NARRATIVE: CASE EVENT DATE: 20250815
